FAERS Safety Report 23844236 (Version 1)
Quarter: 2024Q2

REPORT INFORMATION
  Report Type: Spontaneous
  Country: US (occurrence: US)
  Receive Date: 20240510
  Receipt Date: 20240510
  Transmission Date: 20240716
  Serious: Yes (Hospitalization, Other)
  Sender: FDA-Public Use
  Company Number: US-ACELLA PHARMACEUTICALS, LLC-2024ALO00200

PATIENT

DRUGS (2)
  1. NP THYROID [Suspect]
     Active Substance: LEVOTHYROXINE\LIOTHYRONINE
     Indication: Hypothyroidism
     Dosage: UNK
     Dates: end: 201903
  2. NP THYROID [Suspect]
     Active Substance: LEVOTHYROXINE\LIOTHYRONINE
     Indication: Obesity

REACTIONS (13)
  - Constipation [Not Recovered/Not Resolved]
  - Mental disorder [Unknown]
  - Performance status decreased [Unknown]
  - Palpitations [Unknown]
  - Disturbance in social behaviour [Unknown]
  - Pruritus [Unknown]
  - Dry skin [Unknown]
  - Obsessive thoughts [Unknown]
  - Compulsive shopping [Unknown]
  - Abnormal behaviour [Unknown]
  - Unevaluable event [Unknown]
  - Recalled product administered [Recovered/Resolved]
  - Product use in unapproved indication [Recovered/Resolved]
